FAERS Safety Report 7426196-5 (Version None)
Quarter: 2011Q2

REPORT INFORMATION
  Report Type: 
  Country: None (occurrence: None)
  Receive Date: 20110420
  Receipt Date: 20110415
  Transmission Date: 20111010
  Serious: Yes (Life-Threatening, Hospitalization)
  Sender: FDA-Public Use
  Company Number: FR-JNJFOC-20110406646

PATIENT
  Age: 77 Year
  Sex: Female

DRUGS (8)
  1. TAVANIC [Suspect]
     Indication: LUNG DISORDER
     Route: 048
  2. AMLODIPINE [Concomitant]
     Route: 065
  3. LEXOMIL [Concomitant]
     Route: 065
  4. TRINIPATCH [Concomitant]
     Route: 065
  5. DIFFU K [Concomitant]
     Route: 065
  6. LASIX [Concomitant]
     Route: 065
  7. STILNOX [Concomitant]
     Route: 065
  8. SINTROM [Interacting]
     Indication: ATRIAL FIBRILLATION
     Route: 048

REACTIONS (3)
  - INTERNATIONAL NORMALISED RATIO INCREASED [None]
  - HAEMATOMA [None]
  - DRUG INTERACTION [None]
